FAERS Safety Report 6072073-4 (Version None)
Quarter: 2009Q1

REPORT INFORMATION
  Report Type: 
  Country: None (occurrence: None)
  Receive Date: 20090210
  Receipt Date: 20090115
  Transmission Date: 20090719
  Serious: Yes (Hospitalization)
  Sender: FDA-Public Use
  Company Number: CA-AVENTIS-200910552EU

PATIENT
  Age: 61 Year
  Sex: Male
  Weight: 98.2 kg

DRUGS (11)
  1. LASIX [Suspect]
     Route: 048
  2. ALTACE [Suspect]
     Route: 048
     Dates: start: 20050921
  3. AVAPRO [Suspect]
     Route: 048
  4. METOPROLOL TARTRATE [Concomitant]
     Route: 048
     Dates: start: 20050408
  5. NORVASC [Concomitant]
     Route: 048
     Dates: start: 20070329
  6. LIPITOR [Concomitant]
     Route: 048
     Dates: start: 20070702
  7. ZAROXOLYN [Concomitant]
     Route: 048
  8. HUMULIN N [Concomitant]
     Dosage: DOSE: 14 UNITS IN THE MORNING, 30 UNITS HS
     Route: 051
     Dates: start: 20070228
  9. BRIMONIDINE 0.2% [Concomitant]
     Indication: RETINOPATHY
     Route: 047
  10. AZOPT [Concomitant]
     Indication: RETINOPATHY
     Route: 047
  11. SPIRONOLACTONE [Concomitant]
     Route: 048

REACTIONS (1)
  - HYPERKALAEMIA [None]
